FAERS Safety Report 9039672 (Version 1)
Quarter: 2013Q1

REPORT INFORMATION
  Report Type: Report from Study
  Country: US (occurrence: US)
  Receive Date: 20130129
  Receipt Date: 20130129
  Transmission Date: 20140127
  Serious: No
  Sender: FDA-Public Use
  Company Number: US-ABBOTT-12P-163-0935391-00

PATIENT
  Age: 55 Year
  Sex: Female

DRUGS (5)
  1. HUMIRA 40 MG/0.8 ML PEN [Suspect]
     Indication: PSORIASIS
     Dosage: 80MG ON 09 MAY 2012
     Dates: start: 20120509
  2. CRESTOR [Concomitant]
     Indication: PRODUCT USED FOR UNKNOWN INDICATION
  3. ONE A DAY [Concomitant]
     Indication: VITAMIN SUPPLEMENTATION
  4. ASPIRIN [Concomitant]
     Indication: PRODUCT USED FOR UNKNOWN INDICATION
     Dosage: LOW DOSE
  5. MICARDIS [Concomitant]
     Indication: PRODUCT USED FOR UNKNOWN INDICATION
     Dosage: 80/25MG

REACTIONS (3)
  - Feeling cold [Not Recovered/Not Resolved]
  - Oropharyngeal pain [Not Recovered/Not Resolved]
  - Hyperhidrosis [Not Recovered/Not Resolved]
